FAERS Safety Report 8979770 (Version 5)
Quarter: 2013Q4

REPORT INFORMATION
  Report Type: Report from Study
  Country: US (occurrence: US)
  Receive Date: 20121221
  Receipt Date: 20131018
  Transmission Date: 20140711
  Serious: Yes (Hospitalization)
  Sender: FDA-Public Use
  Company Number: US-PFIZER INC-2012316975

PATIENT
  Age: 72 Year
  Sex: Female
  Weight: 71 kg

DRUGS (9)
  1. TOFACITINIB [Suspect]
     Indication: PSORIASIS
     Dosage: 5 MG, 2X/DAY
     Route: 048
     Dates: start: 20120302, end: 20121213
  2. DEPO-MEDROL [Suspect]
     Indication: BACK PAIN
     Dosage: 80 MG X 1
     Route: 008
     Dates: start: 20121205, end: 20121205
  3. ZITHROMAX [Concomitant]
     Indication: BRONCHITIS
     Dosage: 250 MG, 1X/DAY
     Route: 048
     Dates: start: 20121128, end: 20121202
  4. VITAMIN D [Concomitant]
     Indication: VITAMIN D DEFICIENCY
     Dosage: 1000 MG, 1X/DAY
     Route: 048
  5. LOPID [Concomitant]
     Indication: HYPERCHOLESTEROLAEMIA
     Dosage: 60 MG, 2X/DAY
     Route: 048
  6. ZETIA [Concomitant]
     Indication: HYPERCHOLESTEROLAEMIA
     Dosage: 10 MG, 1X/DAY
     Route: 048
  7. PRILOSEC [Concomitant]
     Indication: GASTROOESOPHAGEAL REFLUX DISEASE
     Dosage: 20 MG, 1X/DAY
     Route: 048
  8. CALCIUM [Concomitant]
     Indication: OSTEOPOROSIS
     Dosage: 500 MG, 2X/DAY
     Route: 048
  9. NAPROSYN [Concomitant]
     Indication: BACK PAIN
     Dosage: 250 MG, 2X/DAY
     Route: 048

REACTIONS (1)
  - Hypertension [Recovered/Resolved]
